FAERS Safety Report 23220414 (Version 3)
Quarter: 2023Q4

REPORT INFORMATION
  Report Type: Spontaneous
  Country: KZ (occurrence: KZ)
  Receive Date: 20231123
  Receipt Date: 20231221
  Transmission Date: 20240109
  Serious: Yes (Other)
  Sender: FDA-Public Use
  Company Number: KZ-HETERO-HET2023KZ03302

PATIENT
  Age: 39 Year
  Sex: Male
  Weight: 47 kg

DRUGS (1)
  1. EFAVIRENZ\EMTRICITABINE\TENOFOVIR DISOPROXIL FUMARATE [Suspect]
     Active Substance: EFAVIRENZ\EMTRICITABINE\TENOFOVIR DISOPROXIL FUMARATE
     Indication: Asymptomatic HIV infection
     Dosage: 1 DOSAGE FORM, QD
     Route: 065
     Dates: start: 20230630, end: 20231019

REACTIONS (1)
  - Neurotoxicity [Recovering/Resolving]
